FAERS Safety Report 25375042 (Version 1)
Quarter: 2025Q2

REPORT INFORMATION
  Report Type: Spontaneous
  Country: US (occurrence: None)
  Receive Date: 20250529
  Receipt Date: 20250529
  Transmission Date: 20250716
  Serious: Yes (Other)
  Sender: FDA-CTU
  Company Number: None

PATIENT
  Age: 58 Year
  Sex: Male

DRUGS (2)
  1. KETAMINE [Suspect]
     Active Substance: KETAMINE
     Route: 045
  2. LITHIUM [Concomitant]
     Active Substance: LITHIUM
     Dates: start: 20250508, end: 20250522

REACTIONS (1)
  - Cystitis [None]

NARRATIVE: CASE EVENT DATE: 20250519
